FAERS Safety Report 8802429 (Version 2)
Quarter: 2015Q1

REPORT INFORMATION
  Report Type: Report from Study
  Country: US (occurrence: US)
  Receive Date: 20120921
  Receipt Date: 20150306
  Transmission Date: 20150721
  Serious: Yes (Death)
  Sender: FDA-Public Use
  Company Number: US-ROCHE-1102926

PATIENT
  Sex: Male

DRUGS (13)
  1. GLIPIZIDE. [Concomitant]
     Active Substance: GLIPIZIDE
  2. FLOMAX (UNITED STATES) [Concomitant]
  3. AVASTIN [Suspect]
     Active Substance: BEVACIZUMAB
     Indication: PLASMA CELL MYELOMA
  4. AVASTIN [Suspect]
     Active Substance: BEVACIZUMAB
     Indication: RENAL CANCER
     Route: 042
     Dates: start: 20050621
  5. AVASTIN [Suspect]
     Active Substance: BEVACIZUMAB
     Indication: PLASMA CELL MYELOMA
     Route: 042
  6. CLINDAMYCIN [Concomitant]
     Active Substance: CLINDAMYCIN\CLINDAMYCIN PHOSPHATE
  7. LISINOPRIL. [Concomitant]
     Active Substance: LISINOPRIL
  8. AVASTIN [Suspect]
     Active Substance: BEVACIZUMAB
     Indication: PLASMA CELL MYELOMA
  9. AVASTIN [Suspect]
     Active Substance: BEVACIZUMAB
     Indication: MALIGNANT URINARY TRACT NEOPLASM
  10. TARCEVA [Suspect]
     Active Substance: ERLOTINIB HYDROCHLORIDE
     Indication: PRODUCT USED FOR UNKNOWN INDICATION
     Route: 048
     Dates: start: 200506
  11. LUNESTA [Concomitant]
     Active Substance: ESZOPICLONE
  12. LORCET (UNITED STATES) [Concomitant]
  13. RITALIN [Concomitant]
     Active Substance: METHYLPHENIDATE HYDROCHLORIDE
     Route: 065

REACTIONS (14)
  - Folliculitis [Unknown]
  - Neck pain [Unknown]
  - Rash [Unknown]
  - Skin exfoliation [Unknown]
  - Back pain [Unknown]
  - Spinal osteoarthritis [Unknown]
  - Off label use [Unknown]
  - Pruritus [Unknown]
  - Neck injury [Unknown]
  - Weight decreased [Unknown]
  - Bone cancer metastatic [Unknown]
  - Death [Fatal]
  - Arthralgia [Unknown]
  - Kyphosis [Unknown]
